FAERS Safety Report 9719345 (Version 1)
Quarter: 2013Q4

REPORT INFORMATION
  Report Type: Spontaneous
  Country: US (occurrence: US)
  Receive Date: 20131127
  Receipt Date: 20131127
  Transmission Date: 20140711
  Serious: No
  Sender: FDA-Public Use
  Company Number: US-009507513-1311USA010923

PATIENT
  Sex: Female

DRUGS (1)
  1. TICE BCG LIVE [Suspect]
     Dosage: UNK
     Dates: start: 20131122, end: 20131122

REACTIONS (3)
  - Ocular hyperaemia [Unknown]
  - Product quality issue [Unknown]
  - Accidental exposure to product [Unknown]
